FAERS Safety Report 5588919-X (Version None)
Quarter: 2007Q4

REPORT INFORMATION
  Report Type: 
  Country: None (occurrence: None)
  Receive Date: 20071212
  Receipt Date: 20070905
  Transmission Date: 20080405
  Serious: No
  Sender: FDA-Public Use
  Company Number: 2007RL000394

PATIENT
  Age: 73 Year
  Sex: Male

DRUGS (3)
  1. LOVAZA [Suspect]
     Indication: BLOOD CHOLESTEROL
     Dosage: 3 GM;QD;PO
     Route: 048
     Dates: start: 20070101
  2. LOVAZA [Suspect]
     Indication: BLOOD TRIGLYCERIDES INCREASED
     Dosage: 3 GM;QD;PO
     Route: 048
     Dates: start: 20070101
  3. TRICOR /00499301/ [Concomitant]

REACTIONS (2)
  - OFF LABEL USE [None]
  - ONYCHOCLASIS [None]
